FAERS Safety Report 26121150 (Version 2)
Quarter: 2025Q4

REPORT INFORMATION
  Report Type: Report from Study
  Country: BR (occurrence: BR)
  Receive Date: 20251204
  Receipt Date: 20251212
  Transmission Date: 20260118
  Serious: Yes (Death, Other)
  Sender: DR REDDYS
  Company Number: BR-RDY-BRA/2025/11/018312

PATIENT
  Sex: Male

DRUGS (1)
  1. LENALIDOMIDE [Suspect]
     Active Substance: LENALIDOMIDE
     Indication: Plasma cell myeloma
     Dosage: TREATMENT CYCLE, 28 DAYS, TAKEN FOR 21 DAYS.
     Route: 065

REACTIONS (1)
  - Death [Fatal]
